FAERS Safety Report 24838943 (Version 1)
Quarter: 2025Q1

REPORT INFORMATION
  Report Type: Report from Study
  Country: BG (occurrence: BG)
  Receive Date: 20250114
  Receipt Date: 20250114
  Transmission Date: 20250409
  Serious: Yes (Death, Hospitalization, Other)
  Sender: ABBVIE
  Company Number: BG-ABBVIE-6067167

PATIENT
  Age: 74 Year
  Sex: Female

DRUGS (1)
  1. HUMIRA [Suspect]
     Active Substance: ADALIMUMAB
     Indication: Rheumatoid arthritis
     Route: 058
     Dates: start: 201606

REACTIONS (3)
  - Death [Fatal]
  - Pneumonia [Unknown]
  - Cerebrovascular accident [Unknown]
